FAERS Safety Report 10513283 (Version 1)
Quarter: 2014Q4

REPORT INFORMATION
  Report Type: Spontaneous
  Country: GB (occurrence: GB)
  Receive Date: 20141013
  Receipt Date: 20141013
  Transmission Date: 20150528
  Serious: Yes (Hospitalization)
  Sender: FDA-Public Use
  Company Number: GB-ACCORD-026360

PATIENT
  Age: 92 Year
  Sex: Male
  Weight: 80 kg

DRUGS (4)
  1. ACETYLSALICYLIC ACID [Concomitant]
     Active Substance: ASPIRIN
     Dosage: 75MG OD
  2. ENALAPRIL [Concomitant]
     Active Substance: ENALAPRIL
     Dosage: 20MG OD
  3. BENDROFLUMETHIAZIDE [Concomitant]
     Active Substance: BENDROFLUMETHIAZIDE
     Dosage: 2.5MG OM
  4. SIMVASTATIN. [Suspect]
     Active Substance: SIMVASTATIN
     Indication: HYPERCHOLESTEROLAEMIA
     Dosage: 40MG AT NIGHT
     Route: 048
     Dates: end: 20140705

REACTIONS (2)
  - Fall [Unknown]
  - Rhabdomyolysis [Recovered/Resolved]
